FAERS Safety Report 5563828-0 (Version None)
Quarter: 2007Q4

REPORT INFORMATION
  Report Type: 
  Country: None (occurrence: None)
  Receive Date: 20071217
  Receipt Date: 20070907
  Transmission Date: 20080405
  Serious: Yes (Disabling)
  Sender: FDA-Public Use
  Company Number: US-ASTRAZENECA-2007UW20485

PATIENT
  Age: 24344 Day
  Sex: Female
  Weight: 123.6 kg

DRUGS (10)
  1. CRESTOR [Suspect]
     Route: 048
     Dates: start: 20070219, end: 20070719
  2. LEVOXYL [Concomitant]
     Indication: HYPOTHYROIDISM
  3. POTASSIUM CHLORIDE [Concomitant]
     Dates: end: 20070801
  4. LASIX [Concomitant]
  5. LASIX [Concomitant]
     Route: 048
  6. COUMADIN [Concomitant]
  7. COREG [Concomitant]
     Indication: HYPERTENSION
  8. AMIODARONE HCL [Concomitant]
     Indication: ATRIAL FIBRILLATION
  9. ACTOS [Concomitant]
     Indication: TYPE 2 DIABETES MELLITUS
     Dates: start: 20070522
  10. ALLOPURINOL [Concomitant]
     Indication: GOUT

REACTIONS (7)
  - ASTHENIA [None]
  - BLOOD CREATINE PHOSPHOKINASE INCREASED [None]
  - LIVER FUNCTION TEST ABNORMAL [None]
  - MUSCULAR WEAKNESS [None]
  - MYALGIA [None]
  - RENAL FAILURE [None]
  - RHABDOMYOLYSIS [None]
